FAERS Safety Report 9391901 (Version 1)
Quarter: 2013Q3

REPORT INFORMATION
  Report Type: Spontaneous
  Country: US (occurrence: None)
  Receive Date: 20130705
  Receipt Date: 20130705
  Transmission Date: 20140515
  Serious: Yes (Other)
  Sender: FDA-Public Use
  Company Number: EL0003

PATIENT
  Age: 42 Year
  Sex: Female
  Weight: 94.8 kg

DRUGS (2)
  1. CLINIQUE ACNE SOLUTION [Suspect]
  2. SALICYLIC ACID [Suspect]

REACTIONS (6)
  - Urticaria [None]
  - Application site warmth [None]
  - Paraesthesia [None]
  - Cellulitis [None]
  - Abscess [None]
  - Bacterial test positive [None]
